FAERS Safety Report 6298336-5 (Version None)
Quarter: 2009Q3

REPORT INFORMATION
  Report Type: 
  Country: None (occurrence: None)
  Receive Date: 20090805
  Receipt Date: 20090728
  Transmission Date: 20100115
  Serious: Yes (Hospitalization)
  Sender: FDA-Public Use
  Company Number: PHHY2009MX30898

PATIENT
  Age: 22 Year
  Sex: Female

DRUGS (1)
  1. ZELMAC [Suspect]
     Indication: IRRITABLE BOWEL SYNDROME
     Dosage: 6 MG, 2 TABLET PER DAY
     Route: 048
     Dates: start: 20090629, end: 20090714

REACTIONS (2)
  - APPENDICECTOMY [None]
  - APPENDICITIS [None]
